FAERS Safety Report 21743435 (Version 6)
Quarter: 2023Q1

REPORT INFORMATION
  Report Type: Report from Study
  Country: US (occurrence: US)
  Receive Date: 20221217
  Receipt Date: 20230210
  Transmission Date: 20230418
  Serious: No
  Sender: FDA-Public Use
  Company Number: US-ABBVIE-4240269

PATIENT
  Sex: Female

DRUGS (2)
  1. VENCLEXTA [Suspect]
     Active Substance: VENETOCLAX
     Indication: Chronic lymphocytic leukaemia
     Dosage: STRENGTH: 100 MILLIGRAM
     Route: 048
  2. VENCLEXTA [Suspect]
     Active Substance: VENETOCLAX
     Indication: Chronic lymphocytic leukaemia
     Dosage: STRENGTH: 100 MILLIGRAM
     Route: 048
     Dates: end: 20221227

REACTIONS (10)
  - Tongue ulceration [Unknown]
  - Full blood count decreased [Recovering/Resolving]
  - Dysgeusia [Unknown]
  - White blood cell count abnormal [Unknown]
  - Blood disorder [Unknown]
  - Swollen tongue [Unknown]
  - Stomatitis [Unknown]
  - Arthralgia [Unknown]
  - Cheilitis [Unknown]
  - Oral pain [Unknown]
